FAERS Safety Report 7086485-3 (Version None)
Quarter: 2010Q4

REPORT INFORMATION
  Report Type: 
  Country: None (occurrence: None)
  Receive Date: 20101028
  Receipt Date: 20101015
  Transmission Date: 20110411
  Serious: Yes (Other)
  Sender: FDA-Public Use
  Company Number: TPA2010A05513

PATIENT
  Age: 60 Year
  Sex: Male

DRUGS (3)
  1. ADENURIC (FEBUXOSTAT) [Suspect]
     Indication: HYPERURICAEMIA
     Dosage: 80 MG, 1 IN 1 D, PER ORAL
     Route: 048
     Dates: start: 20100610, end: 20100908
  2. COLCHIMAX(COLCHICINE, TIEMONIUM METHYLSULPHATE, PAPAVER SOMNIFERUM POW [Suspect]
     Indication: PRODUCT USED FOR UNKNOWN INDICATION
     Dosage: [10057097 - DRUG USE FOR UNKNOWN INIDICATION] [V.13.0]
  3. CHONDROSULFT (CHONDROITIN SULFATE SODIUM) [Concomitant]

REACTIONS (4)
  - CHOLESTASIS [None]
  - CYTOLYTIC HEPATITIS [None]
  - DRUG ADMINISTRATION ERROR [None]
  - HEADACHE [None]
